FAERS Safety Report 7959134-7 (Version None)
Quarter: 2011Q4

REPORT INFORMATION
  Report Type: 
  Country: None (occurrence: None)
  Receive Date: 20111206
  Receipt Date: 20111124
  Transmission Date: 20120403
  Serious: Yes (Hospitalization, Other)
  Sender: FDA-Public Use
  Company Number: FR-ELI_LILLY_AND_COMPANY-FR201106005108

PATIENT
  Age: 20 Year
  Sex: Male
  Weight: 80 kg

DRUGS (2)
  1. DEPAKENE [Concomitant]
     Indication: EPILEPSY
     Dosage: UNK, UNKNOWN
     Route: 048
     Dates: start: 20061001
  2. ZYPREXA [Suspect]
     Indication: PSYCHOTIC DISORDER
     Dosage: 10 MG, QD
     Route: 048
     Dates: start: 20080502, end: 20110617

REACTIONS (6)
  - CEREBRAL HAEMORRHAGE [None]
  - INTRACRANIAL PRESSURE INCREASED [None]
  - OFF LABEL USE [None]
  - HYPERTRIGLYCERIDAEMIA [None]
  - HYPERCHOLESTEROLAEMIA [None]
  - WEIGHT INCREASED [None]
